FAERS Safety Report 23750526 (Version 2)
Quarter: 2024Q2

REPORT INFORMATION
  Report Type: Report from Study
  Country: US (occurrence: US)
  Receive Date: 20240417
  Receipt Date: 20240523
  Transmission Date: 20240716
  Serious: Yes (Other)
  Sender: FDA-Public Use
  Company Number: US-TAKEDA-2024TUS011226

PATIENT
  Sex: Male

DRUGS (4)
  1. TEDUGLUTIDE [Suspect]
     Active Substance: TEDUGLUTIDE
     Indication: Immune system disorder
     Dosage: 0.38 MILLILITER, QD
     Route: 058
  2. TEDUGLUTIDE [Suspect]
     Active Substance: TEDUGLUTIDE
     Indication: Immune system disorder
     Dosage: 0.38 MILLILITER, QD
     Route: 058
  3. TEDUGLUTIDE [Suspect]
     Active Substance: TEDUGLUTIDE
     Indication: Immune system disorder
     Dosage: 0.38 MILLILITER, QD
     Route: 058
  4. TEDUGLUTIDE [Suspect]
     Active Substance: TEDUGLUTIDE
     Indication: Immune system disorder
     Dosage: 0.38 MILLILITER, QD
     Route: 058

REACTIONS (6)
  - Dental operation [Unknown]
  - Food poisoning [Unknown]
  - Muscle spasms [Unknown]
  - Stiff leg syndrome [Unknown]
  - Abdominal pain upper [Unknown]
  - Product dose omission issue [Unknown]
